FAERS Safety Report 25842361 (Version 1)
Quarter: 2025Q3

REPORT INFORMATION
  Report Type: Spontaneous
  Country: US (occurrence: US)
  Receive Date: 20250924
  Receipt Date: 20250924
  Transmission Date: 20251020
  Serious: No
  Sender: PFIZER
  Company Number: US-PFIZER INC-202500187385

PATIENT
  Age: 66 Year
  Sex: Female

DRUGS (2)
  1. LEVOXYL [Suspect]
     Active Substance: LEVOTHYROXINE SODIUM
     Dates: start: 202502
  2. LEVOXYL [Suspect]
     Active Substance: LEVOTHYROXINE SODIUM

REACTIONS (4)
  - Drug ineffective [Unknown]
  - Bronchitis [Unknown]
  - Influenza [Unknown]
  - Recalled product administered [Unknown]

NARRATIVE: CASE EVENT DATE: 20250101
